FAERS Safety Report 5517833-0 (Version None)
Quarter: 2007Q4

REPORT INFORMATION
  Report Type: 
  Country: None (occurrence: None)
  Receive Date: 20071113
  Receipt Date: 20071102
  Transmission Date: 20080405
  Serious: Yes (Hospitalization)
  Sender: FDA-Public Use
  Company Number: 2007-03315

PATIENT
  Age: 71 Year
  Sex: Female
  Weight: 60.7 kg

DRUGS (44)
  1. VELCADE [Suspect]
     Indication: MULTIPLE MYELOMA
     Dosage: 1.00 MG/M2 ; 1.00 MG/M2
     Dates: start: 20050717, end: 20050721
  2. VELCADE [Suspect]
     Indication: MULTIPLE MYELOMA
     Dosage: 1.00 MG/M2 ; 1.00 MG/M2
     Dates: start: 20050722, end: 20050729
  3. VELCADE [Suspect]
     Indication: MULTIPLE MYELOMA
     Dosage: 1.00 MG/M2 ; 1.00 MG/M2
     Dates: start: 20041006
  4. VELCADE [Suspect]
     Indication: MULTIPLE MYELOMA
     Dosage: 1.00 MG/M2 ; 1.00 MG/M2
     Dates: start: 20041116
  5. DEXAMETHASONE TAB [Suspect]
     Indication: MULTIPLE MYELOMA
     Dosage: 40.00 MG ; 40.00 MG
     Dates: start: 20050717, end: 20050721
  6. DEXAMETHASONE TAB [Suspect]
     Indication: MULTIPLE MYELOMA
     Dosage: 40.00 MG ; 40.00 MG
     Dates: start: 20050722, end: 20050725
  7. DEXAMETHASONE TAB [Suspect]
     Indication: MULTIPLE MYELOMA
     Dosage: 40.00 MG ; 40.00 MG
     Dates: start: 20041012
  8. DEXAMETHASONE TAB [Suspect]
     Indication: MULTIPLE MYELOMA
     Dosage: 40.00 MG ; 40.00 MG
     Dates: start: 20041116
  9. THALIDOMIDE [Suspect]
     Indication: MULTIPLE MYELOMA
     Dosage: 200.00 MG ; 200.00 MG
     Dates: start: 20050722, end: 20050725
  10. THALIDOMIDE [Suspect]
     Indication: MULTIPLE MYELOMA
     Dosage: 200.00 MG ; 200.00 MG
     Dates: start: 20041012
  11. THALIDOMIDE [Suspect]
     Indication: MULTIPLE MYELOMA
     Dosage: 200.00 MG ; 200.00 MG
     Dates: start: 20041116
  12. THALIDOMIDE [Suspect]
     Indication: MULTIPLE MYELOMA
     Dosage: 200.00 MG ; 200.00 MG
     Dates: start: 20070717
  13. CISPLATIN [Suspect]
     Indication: MULTIPLE MYELOMA
     Dosage: 10.00 MG/M2 ; 7.50 MG/M2
     Dates: start: 20050717, end: 20050721
  14. CISPLATIN [Suspect]
     Indication: MULTIPLE MYELOMA
     Dosage: 10.00 MG/M2 ; 7.50 MG/M2
     Dates: start: 20050722, end: 20050725
  15. CISPLATIN [Suspect]
     Indication: MULTIPLE MYELOMA
     Dosage: 10.00 MG/M2 ; 7.50 MG/M2
     Dates: start: 20041012
  16. CISPLATIN [Suspect]
     Indication: MULTIPLE MYELOMA
     Dosage: 10.00 MG/M2 ; 7.50 MG/M2
     Dates: start: 20041116
  17. ADRIAMYCIN RDF [Suspect]
     Indication: MULTIPLE MYELOMA
     Dosage: 10.00 MG/M2 ; 7.50 MG/M2
     Dates: start: 20050717, end: 20050721
  18. ADRIAMYCIN RDF [Suspect]
     Indication: MULTIPLE MYELOMA
     Dosage: 10.00 MG/M2 ; 7.50 MG/M2
     Dates: start: 20050722, end: 20050725
  19. ADRIAMYCIN RDF [Suspect]
     Indication: MULTIPLE MYELOMA
     Dosage: 10.00 MG/M2 ; 7.50 MG/M2
     Dates: start: 20041012
  20. ADRIAMYCIN RDF [Suspect]
     Indication: MULTIPLE MYELOMA
     Dosage: 10.00 MG/M2 ; 7.50 MG/M2
     Dates: start: 20041116
  21. CYCLOPHOSPHAMIDE [Suspect]
     Indication: MULTIPLE MYELOMA
     Dosage: 400.00 MG/M2 ; 300.00 MG/M2
     Dates: start: 20050717, end: 20050721
  22. CYCLOPHOSPHAMIDE [Suspect]
     Indication: MULTIPLE MYELOMA
     Dosage: 400.00 MG/M2 ; 300.00 MG/M2
     Dates: start: 20050722, end: 20050725
  23. CYCLOPHOSPHAMIDE [Suspect]
     Indication: MULTIPLE MYELOMA
     Dosage: 400.00 MG/M2 ; 300.00 MG/M2
     Dates: start: 20041012
  24. CYCLOPHOSPHAMIDE [Suspect]
     Indication: MULTIPLE MYELOMA
     Dosage: 400.00 MG/M2 ; 300.00 MG/M2
     Dates: start: 20041116
  25. ETOPOSIDE [Suspect]
     Indication: MULTIPLE MYELOMA
     Dosage: 40.00 MG/M2 ; 30.00 MG/M2
     Dates: start: 20050717, end: 20050721
  26. ETOPOSIDE [Suspect]
     Indication: MULTIPLE MYELOMA
     Dosage: 40.00 MG/M2 ; 30.00 MG/M2
     Dates: start: 20050722, end: 20050725
  27. ETOPOSIDE [Suspect]
     Indication: MULTIPLE MYELOMA
     Dosage: 40.00 MG/M2 ; 30.00 MG/M2
     Dates: start: 20041012
  28. ETOPOSIDE [Suspect]
     Indication: MULTIPLE MYELOMA
     Dosage: 40.00 MG/M2 ; 30.00 MG/M2
     Dates: start: 20041116
  29. MELPHALAN(MELPHALAN) VIAL [Suspect]
     Indication: MULTIPLE MYELOMA
     Dosage: 140.00 MG/M2 ; 140.00 MG/M2
     Dates: start: 20050104, end: 20050104
  30. MELPHALAN(MELPHALAN) VIAL [Suspect]
     Indication: MULTIPLE MYELOMA
     Dosage: 140.00 MG/M2 ; 140.00 MG/M2
     Dates: start: 20050418, end: 20050418
  31. ARANESP [Concomitant]
  32. AREDIA [Concomitant]
  33. CLINDAMYCIN (CLINDAMYCIN) [Concomitant]
  34. MAXIPIME [Concomitant]
  35. FOLATE (FOLIC ACID) [Concomitant]
  36. LOVENOX [Concomitant]
  37. ZANTAC 150 [Concomitant]
  38. DIFLUCAN [Concomitant]
  39. ACYCLOVIR [Concomitant]
  40. CALCIUM (CALCIUM) [Concomitant]
  41. ATENOLOL [Concomitant]
  42. SYNTHROID [Concomitant]
  43. MULTIVITAMIN [Concomitant]
  44. ACIDOPHILUS (LACTOBACILLUS ACIDOPHILUS) [Concomitant]

REACTIONS (14)
  - ANAEMIA [None]
  - ATRIAL FIBRILLATION [None]
  - BACTERAEMIA [None]
  - CHOLELITHIASIS [None]
  - DIARRHOEA [None]
  - ENTERITIS [None]
  - HYPOKALAEMIA [None]
  - HYPOTENSION [None]
  - METABOLIC ACIDOSIS [None]
  - NEUTROPENIA [None]
  - PNEUMONIA [None]
  - RENAL FAILURE [None]
  - THROMBOCYTOPENIA [None]
  - URINARY TRACT INFECTION ENTEROCOCCAL [None]
